FAERS Safety Report 9050530 (Version 1)
Quarter: 2013Q1

REPORT INFORMATION
  Report Type: Spontaneous
  Country: MW (occurrence: MW)
  Receive Date: 20130205
  Receipt Date: 20130205
  Transmission Date: 20140127
  Serious: Yes (Death, Other)
  Sender: FDA-Public Use
  Company Number: PHHY2012MW120541

PATIENT
  Sex: Male

DRUGS (1)
  1. PENICILLIN G SODIUM [Suspect]
     Route: 042
     Dates: start: 201211, end: 201211

REACTIONS (3)
  - Hypersensitivity [Fatal]
  - Electrolyte imbalance [Unknown]
  - Wrong technique in drug usage process [Unknown]
